FAERS Safety Report 12181813 (Version 3)
Quarter: 2016Q2

REPORT INFORMATION
  Report Type: Spontaneous
  Country: US (occurrence: US)
  Receive Date: 20160315
  Receipt Date: 20160418
  Transmission Date: 20160815
  Serious: No
  Sender: FDA-Public Use
  Company Number: US-ALEXION-A201601643

PATIENT
  Sex: Female

DRUGS (1)
  1. STRENSIQ [Suspect]
     Active Substance: ASFOTASE ALFA
     Indication: HYPOPHOSPHATASIA
     Dosage: UNK, SIX TIMES/WEEK
     Route: 058
     Dates: start: 20160209

REACTIONS (2)
  - Dry eye [Recovering/Resolving]
  - Vitamin B6 decreased [Not Recovered/Not Resolved]

NARRATIVE: CASE EVENT DATE: 20160211
